FAERS Safety Report 7607740-1 (Version None)
Quarter: 2011Q3

REPORT INFORMATION
  Report Type: 
  Country: None (occurrence: None)
  Receive Date: 20110713
  Receipt Date: 20110611
  Transmission Date: 20111222
  Serious: Yes (Other)
  Sender: FDA-Public Use
  Company Number: PHHY2011MX53067

PATIENT
  Age: 64 Year
  Sex: Female

DRUGS (3)
  1. DIOVAN [Suspect]
     Indication: HYPERTENSION
     Dosage: 1 DF, 1 TABLET PER DAY
     Dates: start: 20110301
  2. DIOVAN [Suspect]
     Dosage: 2 DF, PRN
  3. DIOVAN HCT [Suspect]

REACTIONS (5)
  - ASPHYXIA [None]
  - HYPERTENSION [None]
  - DYSPNOEA [None]
  - OEDEMA PERIPHERAL [None]
  - HEADACHE [None]
